FAERS Safety Report 7532572-2 (Version None)
Quarter: 2011Q2

REPORT INFORMATION
  Report Type: 
  Country: None (occurrence: None)
  Receive Date: 20110608
  Receipt Date: 20110527
  Transmission Date: 20111010
  Serious: Yes (Death, Hospitalization)
  Sender: FDA-Public Use
  Company Number: JP-CELGENEUS-087-21880-10112830

PATIENT
  Sex: Female
  Weight: 54.8 kg

DRUGS (10)
  1. REVLIMID [Suspect]
     Dosage: 10 MILLIGRAM
     Route: 048
     Dates: start: 20101004, end: 20101009
  2. CINACALCET HYDROCHLORIDE [Concomitant]
     Indication: RENAL IMPAIRMENT
     Dosage: 25 MILLIGRAM
     Route: 048
     Dates: end: 20101012
  3. DOXAZOSIN MESYLATE [Concomitant]
     Indication: HYPERTENSION
     Dosage: 1 MILLIGRAM
     Route: 048
     Dates: end: 20101012
  4. OMEPRAZOLE [Concomitant]
     Indication: PROPHYLAXIS
     Dosage: 20 MILLIGRAM
     Route: 048
     Dates: end: 20101012
  5. NIFEDIPINE [Concomitant]
     Indication: HYPERTENSION
     Dosage: 40 MILLIGRAM
     Route: 048
     Dates: end: 20101012
  6. FOSRENOL [Concomitant]
     Indication: RENAL IMPAIRMENT
     Dosage: 750 MILLIGRAM
     Route: 048
     Dates: end: 20101012
  7. TRANDOLAPRIL [Concomitant]
     Indication: HYPERTENSION
     Dosage: 1 MILLIGRAM
     Route: 048
     Dates: end: 20101012
  8. LOXOPROFEN SODIUM [Concomitant]
     Dosage: 180 MILLIGRAM
     Route: 048
     Dates: end: 20101012
  9. CANDESARTAN CILEXETIL [Concomitant]
     Indication: HYPERTENSION
     Dosage: 8 MILLIGRAM
     Route: 048
     Dates: end: 20101012
  10. VOGLIBOSE [Concomitant]
     Indication: DIABETES MELLITUS
     Dosage: .6 MILLIGRAM
     Route: 048
     Dates: end: 20101012

REACTIONS (2)
  - MULTIPLE MYELOMA [None]
  - THROMBOCYTOPENIA [None]
